FAERS Safety Report 16804055 (Version 1)
Quarter: 2019Q3

REPORT INFORMATION
  Report Type: Spontaneous
  Country: IL (occurrence: IL)
  Receive Date: 20190913
  Receipt Date: 20190913
  Transmission Date: 20191005
  Serious: Yes (Life-Threatening, Hospitalization, Other)
  Sender: FDA-Public Use
  Company Number: IL-ACCORD-154876

PATIENT
  Age: 35 Year
  Sex: Female

DRUGS (6)
  1. BISOPROLOL [Suspect]
     Active Substance: BISOPROLOL
     Route: 048
  2. VENLAFAXINE/VENLAFAXINE HYDROCHLORIDE [Suspect]
     Active Substance: VENLAFAXINE HYDROCHLORIDE
     Route: 048
  3. ESCITALOPRAM [Suspect]
     Active Substance: ESCITALOPRAM OXALATE
     Route: 048
  4. CLONAZEPAM. [Suspect]
     Active Substance: CLONAZEPAM
     Route: 048
  5. QUETIAPINE. [Suspect]
     Active Substance: QUETIAPINE
     Route: 048
  6. FLECAINIDE [Suspect]
     Active Substance: FLECAINIDE
     Route: 048

REACTIONS (6)
  - Anaemia [Recovered/Resolved]
  - Intentional overdose [Unknown]
  - Cardiac arrest [Recovered/Resolved]
  - Infection [Recovered/Resolved]
  - Thrombocytopenia [Recovered/Resolved]
  - Cardiotoxicity [Recovered/Resolved]
